FAERS Safety Report 4943137-0 (Version None)
Quarter: 2006Q1

REPORT INFORMATION
  Report Type: 
  Country: None (occurrence: None)
  Receive Date: 20060314
  Receipt Date: 20051123
  Transmission Date: 20060701
  Serious: Yes (Hospitalization, Other)
  Sender: FDA-Public Use
  Company Number: US-MERCK-0511USA04006

PATIENT
  Sex: Female
  Weight: 68 kg

DRUGS (15)
  1. VIOXX [Suspect]
     Indication: NECK PAIN
     Route: 048
     Dates: start: 20010401, end: 20040901
  2. VIOXX [Suspect]
     Indication: ARTHRITIS
     Route: 048
     Dates: start: 20010401, end: 20040901
  3. BUFFERIN [Concomitant]
     Route: 065
  4. AMOXICILLIN AND CLAVULANATE POTASSIUM [Concomitant]
     Route: 065
  5. DOXAZOSIN MESYLATE [Concomitant]
     Route: 065
  6. [THERAPY UNSPECIFIED] [Concomitant]
     Route: 065
  7. ESTRADERM [Concomitant]
     Route: 065
  8. HYDROCORTISONE [Concomitant]
     Route: 065
  9. MIRALAX [Concomitant]
     Route: 065
  10. PAXIL [Concomitant]
     Route: 065
  11. PHENTERMINE [Concomitant]
     Route: 065
  12. TIAZAC [Concomitant]
     Route: 065
  13. XENICAL [Concomitant]
     Route: 065
  14. ZELNORM [Concomitant]
     Route: 065
  15. ZITHROMAX [Concomitant]
     Route: 065

REACTIONS (7)
  - AMNESIA [None]
  - CEREBROVASCULAR ACCIDENT [None]
  - DIZZINESS [None]
  - EMOTIONAL DISTRESS [None]
  - EYE DISORDER [None]
  - INTESTINAL OBSTRUCTION [None]
  - SPINAL DISORDER [None]
